FAERS Safety Report 12475797 (Version 1)
Quarter: 2016Q2

REPORT INFORMATION
  Report Type: Spontaneous
  Country: CO (occurrence: CO)
  Receive Date: 20160617
  Receipt Date: 20160617
  Transmission Date: 20160815
  Serious: Yes (Other)
  Sender: FDA-Public Use
  Company Number: CO-009507513-1512COL007429

PATIENT
  Age: 41 Year
  Sex: Male
  Weight: 80 kg

DRUGS (9)
  1. NORFLOXACIN [Concomitant]
     Active Substance: NORFLOXACIN
     Dosage: 400 MG, QD
     Route: 048
     Dates: start: 20150821
  2. FOLIC ACID. [Concomitant]
     Active Substance: FOLIC ACID
     Dosage: 1 MG, QD
     Route: 048
     Dates: start: 20150821
  3. LOSARTAN POTASSIUM. [Concomitant]
     Active Substance: LOSARTAN POTASSIUM
     Dosage: 50 MG, QD
     Route: 048
     Dates: start: 20150821
  4. VICTRELIS [Suspect]
     Active Substance: BOCEPREVIR
     Indication: HEPATITIS C
     Dosage: 2400 MG, DAILY
     Route: 048
     Dates: start: 20150919, end: 20160611
  5. PEGINTRON [Suspect]
     Active Substance: PEGINTERFERON ALFA-2B
     Indication: HEPATITIS C
     Dosage: 120 MICROGRAM, WEEKLY
     Route: 058
     Dates: start: 20150821, end: 2015
  6. REBETOL [Suspect]
     Active Substance: RIBAVIRIN
     Indication: HEPATITIS C
     Dosage: 1200 MG, DAILY
     Route: 048
     Dates: start: 20150821, end: 201606
  7. THIAMINE. [Concomitant]
     Active Substance: THIAMINE
     Dosage: 300 MG, QD
     Route: 048
     Dates: start: 20150821
  8. PEGINTRON [Suspect]
     Active Substance: PEGINTERFERON ALFA-2B
     Dosage: 80 MICROGRAM, QW
     Dates: start: 2015, end: 20160611
  9. REBETOL [Suspect]
     Active Substance: RIBAVIRIN
     Dosage: 600 MG, DAILY
     Route: 048
     Dates: start: 2015, end: 20160611

REACTIONS (3)
  - Anaemia [Recovered/Resolved]
  - Thrombocytopenia [Unknown]
  - Neutropenia [Unknown]

NARRATIVE: CASE EVENT DATE: 20151204
